FAERS Safety Report 18667158 (Version 1)
Quarter: 2020Q4

REPORT INFORMATION
  Report Type: Report from Study
  Country: None (occurrence: US)
  Receive Date: 20201228
  Receipt Date: 20201228
  Transmission Date: 20210114
  Serious: Yes (Other)
  Sender: FDA-Public Use
  Company Number: US-ABBVIE-20K-163-3702953-00

PATIENT
  Sex: Female

DRUGS (1)
  1. HUMIRA [Suspect]
     Active Substance: ADALIMUMAB
     Indication: ANKYLOSING SPONDYLITIS
     Dosage: HUMIRA CITRATE FREE
     Route: 058

REACTIONS (9)
  - Partial seizures [Recovered/Resolved]
  - Ankylosing spondylitis [Unknown]
  - Renal surgery [Unknown]
  - Post procedural complication [Unknown]
  - Nephrolithiasis [Recovered/Resolved]
  - Ureteral disorder [Unknown]
  - Dermatitis [Unknown]
  - Erythema [Unknown]
  - Visual impairment [Unknown]
